FAERS Safety Report 12991564 (Version 2)
Quarter: 2016Q4

REPORT INFORMATION
  Report Type: Spontaneous
  Country: US (occurrence: US)
  Receive Date: 20161201
  Receipt Date: 20161206
  Transmission Date: 20170207
  Serious: Yes (Other)
  Sender: FDA-Public Use
  Company Number: US-PFIZER INC-2016556559

PATIENT
  Age: 63 Year
  Sex: Female
  Weight: 54.43 kg

DRUGS (11)
  1. NORVASC [Concomitant]
     Active Substance: AMLODIPINE BESYLATE
     Indication: HYPERTENSION
     Dosage: 5 MG, UNK
  2. PREMARIN [Concomitant]
     Active Substance: ESTROGENS, CONJUGATED
     Indication: HOT FLUSH
     Dosage: UNK
  3. ROTACEF [Concomitant]
     Indication: UPPER LIMB FRACTURE
     Dosage: 7.5 MG, 3X/DAY
  4. CEFTIN [Concomitant]
     Active Substance: CEFUROXIME AXETIL
     Indication: CHRONIC OBSTRUCTIVE PULMONARY DISEASE
     Dosage: 500 MG, UNK
  5. LYRICA [Suspect]
     Active Substance: PREGABALIN
     Indication: FIBROMYALGIA
     Dosage: 200 MG, 2X/DAY
  6. CYMBALTA [Concomitant]
     Active Substance: DULOXETINE HYDROCHLORIDE
     Indication: FIBROMYALGIA
     Dosage: 60 MG, UNK
  7. IBUPROFEN. [Concomitant]
     Active Substance: IBUPROFEN
     Dosage: 800 MG, 3X/DAY
  8. PREDNISONE. [Concomitant]
     Active Substance: PREDNISONE
     Indication: ANTIBIOTIC THERAPY
     Dosage: 20 MG, UNK
  9. PIMENOL [Concomitant]
     Active Substance: PIRMENOL HYDROCHLORIDE
     Indication: DEPRESSION
     Dosage: 50 MG, UNK
  10. WELLBUTRIN [Concomitant]
     Active Substance: BUPROPION HYDROCHLORIDE
     Indication: DEPRESSION
     Dosage: 75 MG, UNK
  11. PREVACID [Concomitant]
     Active Substance: LANSOPRAZOLE
     Indication: GASTRIC DISORDER
     Dosage: 30 MG, UNK

REACTIONS (6)
  - Impaired healing [Unknown]
  - Glucose tolerance impaired [Unknown]
  - Drug ineffective [Unknown]
  - Upper limb fracture [Unknown]
  - Fall [Unknown]
  - Drug dependence [Unknown]

NARRATIVE: CASE EVENT DATE: 20161007
